FAERS Safety Report 4519963-9 (Version None)
Quarter: 2004Q4

REPORT INFORMATION
  Report Type: 
  Country: None (occurrence: None)
  Receive Date: 20041207
  Receipt Date: 20041007
  Transmission Date: 20050328
  Serious: Yes (Disabling)
  Sender: FDA-Public Use
  Company Number: US-MERCK-0410USA01025

PATIENT
  Age: 66 Year
  Sex: Female
  Weight: 115 kg

DRUGS (9)
  1. VIOXX [Suspect]
     Indication: OSTEOARTHRITIS
     Route: 048
  2. GLUCOPHAGE [Concomitant]
     Route: 065
  3. REGLAN [Concomitant]
     Route: 065
  4. ZOLOFT [Concomitant]
     Route: 065
  5. INSULIN [Concomitant]
     Route: 065
  6. ACIPHEX [Concomitant]
     Route: 065
  7. PROVENTIL [Concomitant]
     Route: 065
  8. LASIX [Concomitant]
     Route: 065
  9. LEVOXYL [Concomitant]
     Route: 065

REACTIONS (2)
  - CEREBROVASCULAR ACCIDENT [None]
  - LACUNAR INFARCTION [None]
